FAERS Safety Report 7508049-7 (Version None)
Quarter: 2011Q2

REPORT INFORMATION
  Report Type: 
  Country: None (occurrence: None)
  Receive Date: 20110527
  Receipt Date: 20101220
  Transmission Date: 20111010
  Serious: Yes (Hospitalization)
  Sender: FDA-Public Use
  Company Number: US-BAYER-201022665NA

PATIENT
  Age: 24 Year
  Sex: Female
  Weight: 91 kg

DRUGS (10)
  1. PHENTERMINE [Concomitant]
  2. YASMIN [Suspect]
     Indication: ACNE
     Route: 048
     Dates: start: 20080901, end: 20090601
  3. METOCLOPRAMIDE [Concomitant]
     Dosage: BEFORE MEALS
     Route: 048
  4. ADIPEX [Concomitant]
  5. YAZ [Suspect]
     Indication: ACNE
     Route: 048
     Dates: start: 20080901, end: 20090601
  6. PERCOCET [Concomitant]
     Indication: PAIN
     Dosage: 5/325 MG - ONE TO TWO TABS FOUR TIMES A DAY
  7. DOXYCYCLINE [Concomitant]
     Indication: ACNE
  8. IBUPROFEN [Concomitant]
     Indication: PAIN
  9. PRILOSEC [Concomitant]
     Indication: GASTROOESOPHAGEAL REFLUX DISEASE
     Route: 048
  10. SENOKOT [Concomitant]
     Dosage: 2 DF (DAILY DOSE), HS,

REACTIONS (4)
  - ABDOMINAL PAIN UPPER [None]
  - DYSPEPSIA [None]
  - CHOLECYSTITIS CHRONIC [None]
  - NAUSEA [None]
